FAERS Safety Report 4761016-9 (Version None)
Quarter: 2005Q3

REPORT INFORMATION
  Report Type: 
  Country: None (occurrence: None)
  Receive Date: 20050901
  Receipt Date: 20050824
  Transmission Date: 20060218
  Serious: Yes (Hospitalization)
  Sender: FDA-Public Use
  Company Number: 216918

PATIENT
  Age: 24 Year
  Sex: Male
  Weight: 72 kg

DRUGS (8)
  1. AVASTIN [Suspect]
     Indication: GASTROOESOPHAGEAL CANCER
     Dosage: 15 MG/KG, Q3W, INTRAVENOUS
     Route: 042
     Dates: start: 20050804
  2. OXALIPLATIN (OXALIPLATIN) [Suspect]
     Indication: GASTROOESOPHAGEAL CANCER
     Dosage: 75 MG/M2, Q3W, INTRAVENOUS
     Route: 042
     Dates: start: 20050804
  3. DOCETAXEL (DOCETAXEL) [Suspect]
     Indication: GASTROOESOPHAGEAL CANCER
     Dosage: 70 MG/M2, Q3W, INTRAVENOUS
     Route: 042
     Dates: start: 20050804
  4. LEXAPRO [Concomitant]
  5. ZITHROMAX [Concomitant]
  6. CARAFATE [Concomitant]
  7. LORTAB ELIXIR (ACETAMINOPHEN, HYDROCODONE BITARTRATE) [Concomitant]
  8. DURAGESIC-100 [Concomitant]

REACTIONS (6)
  - BACTERIAL INFECTION [None]
  - BLOOD CULTURE POSITIVE [None]
  - LABORATORY TEST INTERFERENCE [None]
  - NEUTROPENIA [None]
  - PHARYNGOLARYNGEAL PAIN [None]
  - VOMITING [None]
